FAERS Safety Report 17231338 (Version 2)
Quarter: 2020Q1

REPORT INFORMATION
  Report Type: Spontaneous
  Country: US (occurrence: US)
  Receive Date: 20200103
  Receipt Date: 20200117
  Transmission Date: 20200409
  Serious: No
  Sender: FDA-Public Use
  Company Number: US-PFIZER INC-2019560650

PATIENT
  Sex: Male

DRUGS (3)
  1. BENADRYL [Concomitant]
     Active Substance: DIPHENHYDRAMINE HYDROCHLORIDE
     Dosage: UNK
  2. OXALIPLATIN. [Suspect]
     Active Substance: OXALIPLATIN
     Indication: COLON ADENOMA
     Dosage: UNK
     Dates: start: 20191204
  3. OXALIPLATIN. [Suspect]
     Active Substance: OXALIPLATIN
     Dosage: 250 MG, UNK (250 MG OXALIPLATIN OF 3 WEEKS)
     Route: 042
     Dates: start: 20191205

REACTIONS (5)
  - Dizziness [Recovered/Resolved]
  - Paraesthesia [Unknown]
  - Neurological symptom [Unknown]
  - Limb discomfort [Recovered/Resolved]
  - Pain [Recovered/Resolved]

NARRATIVE: CASE EVENT DATE: 20191204
